FAERS Safety Report 20711559 (Version 1)
Quarter: 2022Q2

REPORT INFORMATION
  Report Type: Spontaneous
  Country: US (occurrence: US)
  Receive Date: 20220414
  Receipt Date: 20220414
  Transmission Date: 20220720
  Serious: No
  Sender: FDA-Public Use
  Company Number: US-ELI_LILLY_AND_COMPANY-US202204007101

PATIENT
  Sex: Male

DRUGS (1)
  1. TRULICITY [Suspect]
     Active Substance: DULAGLUTIDE
     Indication: Type 2 diabetes mellitus
     Dosage: 0.75 MG, UNKNOWN
     Route: 065

REACTIONS (8)
  - Insulin resistance [Unknown]
  - Feeding disorder [Unknown]
  - Feeling abnormal [Unknown]
  - Eructation [Unknown]
  - Diarrhoea [Unknown]
  - Dyspepsia [Unknown]
  - Vomiting [Unknown]
  - Nausea [Unknown]
